FAERS Safety Report 21211442 (Version 1)
Quarter: 2022Q3

REPORT INFORMATION
  Report Type: Other
  Country: US (occurrence: None)
  Receive Date: 20220815
  Receipt Date: 20220815
  Transmission Date: 20221026
  Serious: No
  Sender: FDA-Public Use
  Company Number: US-ROCHE-3154618

PATIENT
  Age: 65 Year
  Sex: Female
  Weight: 65.830 kg

DRUGS (9)
  1. OCREVUS [Suspect]
     Active Substance: OCRELIZUMAB
     Indication: Relapsing-remitting multiple sclerosis
     Dosage: YES
     Route: 065
     Dates: start: 20200218
  2. OCREVUS [Suspect]
     Active Substance: OCRELIZUMAB
     Route: 065
  3. VALIUM [Suspect]
     Active Substance: DIAZEPAM
     Indication: Product used for unknown indication
     Route: 065
  4. MAGNESIUM [Concomitant]
     Active Substance: MAGNESIUM
  5. NUVIGIL [Concomitant]
     Active Substance: ARMODAFINIL
  6. PEPCID [Concomitant]
     Active Substance: FAMOTIDINE
  7. TYSABRI [Concomitant]
     Active Substance: NATALIZUMAB
  8. VALACYCLOVIR [Concomitant]
     Active Substance: VALACYCLOVIR HYDROCHLORIDE
  9. VITAMIN D3 [Concomitant]
     Active Substance: CHOLECALCIFEROL

REACTIONS (4)
  - COVID-19 [Recovered/Resolved]
  - Amnesia [Not Recovered/Not Resolved]
  - JC polyomavirus test positive [Unknown]
  - Off label use [Unknown]

NARRATIVE: CASE EVENT DATE: 20220514
